FAERS Safety Report 4816796-0 (Version None)
Quarter: 2005Q4

REPORT INFORMATION
  Report Type: 
  Country: None (occurrence: None)
  Receive Date: 20051028
  Receipt Date: 20051020
  Transmission Date: 20060501
  Serious: Yes (Other)
  Sender: FDA-Public Use
  Company Number: GXKR2005US01842

PATIENT
  Age: 47 Week
  Sex: Male

DRUGS (1)
  1. AMIODARONE HCL [Suspect]
     Indication: VENTRICULAR TACHYCARDIA
     Dosage: INTRAVENOUS
     Route: 042

REACTIONS (6)
  - ARRHYTHMIA [None]
  - DISEASE RECURRENCE [None]
  - ERYTHEMA [None]
  - TENDERNESS [None]
  - THROMBOPHLEBITIS SEPTIC [None]
  - THROMBOPHLEBITIS SUPERFICIAL [None]
